FAERS Safety Report 9431779 (Version 1)
Quarter: 2013Q3

REPORT INFORMATION
  Report Type: Spontaneous
  Country: US (occurrence: US)
  Receive Date: 20130731
  Receipt Date: 20130731
  Transmission Date: 20140515
  Serious: No
  Sender: FDA-Public Use
  Company Number: US-009507513-1307USA016746

PATIENT
  Age: 23 Year
  Sex: Female
  Weight: 54.43 kg

DRUGS (1)
  1. IMPLANON [Suspect]
     Indication: CONTRACEPTION
     Dosage: FOR 3 YEARS 1 ROD
     Route: 059
     Dates: start: 20121126

REACTIONS (3)
  - Headache [Unknown]
  - Weight decreased [Unknown]
  - Implant site bruising [Unknown]
